FAERS Safety Report 25829457 (Version 1)
Quarter: 2025Q3

REPORT INFORMATION
  Report Type: Report from Study
  Country: US (occurrence: US)
  Receive Date: 20250922
  Receipt Date: 20250922
  Transmission Date: 20251021
  Serious: Yes (Other)
  Sender: SUNOVION
  Company Number: US-SMPA-2025SPA011816

PATIENT
  Age: 85 Year
  Sex: Male

DRUGS (10)
  1. ORGOVYX [Suspect]
     Active Substance: RELUGOLIX
     Indication: Prostate cancer
     Route: 048
  2. ORGOVYX [Suspect]
     Active Substance: RELUGOLIX
     Route: 048
  3. ABIRATERONE ACETATE [Concomitant]
     Active Substance: ABIRATERONE ACETATE
  4. CALTRATE [Concomitant]
     Active Substance: CALCIUM CARBONATE
  5. DIGOXIN [Concomitant]
     Active Substance: DIGOXIN
  6. ELIQUIS [Concomitant]
     Active Substance: APIXABAN
  7. MIDODRINE HYDROCHLORIDE [Concomitant]
     Active Substance: MIDODRINE HYDROCHLORIDE
  8. PREDNISONE [Concomitant]
     Active Substance: PREDNISONE
  9. ROSUVASTATIN CALCIUM [Concomitant]
     Active Substance: ROSUVASTATIN CALCIUM
  10. VITAMIN D3 [Concomitant]
     Active Substance: CHOLECALCIFEROL

REACTIONS (2)
  - Hip surgery [Unknown]
  - Nocturia [Unknown]
